FAERS Safety Report 7922880-5 (Version None)
Quarter: 2011Q4

REPORT INFORMATION
  Report Type: 
  Country: None (occurrence: None)
  Receive Date: 20111117
  Receipt Date: 20110125
  Transmission Date: 20120403
  Serious: No
  Sender: FDA-Public Use
  Company Number: US-AMGEN-USASP2011004610

PATIENT
  Age: 59 Year
  Sex: Female

DRUGS (1)
  1. ENBREL [Suspect]
     Indication: RHEUMATOID ARTHRITIS
     Dates: start: 20110103

REACTIONS (7)
  - DISCOMFORT [None]
  - INCREASED UPPER AIRWAY SECRETION [None]
  - ABDOMINAL DISCOMFORT [None]
  - JOINT STIFFNESS [None]
  - OEDEMA PERIPHERAL [None]
  - NASAL CONGESTION [None]
  - BUNION [None]
